FAERS Safety Report 12418035 (Version 1)
Quarter: 2016Q2

REPORT INFORMATION
  Report Type: Spontaneous
  Country: US (occurrence: US)
  Receive Date: 20160531
  Receipt Date: 20160531
  Transmission Date: 20160815
  Serious: Yes (Death)
  Sender: FDA-Public Use
  Company Number: US-BAUSCH-BL-2016-012495

PATIENT
  Age: 69 Year
  Sex: Male

DRUGS (6)
  1. DEXAMETHASONE SALT NOT SPECIFIED [Suspect]
     Active Substance: DEXAMETHASONE
     Indication: T-CELL TYPE ACUTE LEUKAEMIA
     Route: 065
  2. FLUOROURACIL. [Suspect]
     Active Substance: FLUOROURACIL
     Indication: COLON CANCER
     Route: 065
  3. METHOTREXATE [Suspect]
     Active Substance: METHOTREXATE
     Indication: T-CELL TYPE ACUTE LEUKAEMIA
     Route: 065
  4. VINCRISTINE [Suspect]
     Active Substance: VINCRISTINE
     Indication: T-CELL TYPE ACUTE LEUKAEMIA
     Route: 065
  5. DOXORUBICIN [Suspect]
     Active Substance: DOXORUBICIN
     Indication: T-CELL TYPE ACUTE LEUKAEMIA
     Route: 065
  6. CYTARABINE. [Suspect]
     Active Substance: CYTARABINE
     Indication: T-CELL TYPE ACUTE LEUKAEMIA
     Route: 065

REACTIONS (2)
  - T-cell type acute leukaemia [Fatal]
  - Drug ineffective [Unknown]
